FAERS Safety Report 6578237-5 (Version None)
Quarter: 2010Q1

REPORT INFORMATION
  Report Type: 
  Country: None (occurrence: None)
  Receive Date: 20100211
  Receipt Date: 20100210
  Transmission Date: 20100710
  Serious: Yes (Hospitalization)
  Sender: FDA-Public Use
  Company Number: A0837203A

PATIENT
  Sex: Female

DRUGS (3)
  1. ADVAIR DISKUS 100/50 [Suspect]
     Indication: DRUG USE FOR UNKNOWN INDICATION
     Route: 055
  2. BLOOD PRESSURE MEDICATION [Suspect]
     Route: 065
  3. PREDNISONE [Suspect]

REACTIONS (5)
  - CANDIDIASIS [None]
  - COUGH [None]
  - HYPOTENSION [None]
  - OROPHARYNGEAL PAIN [None]
  - PULMONARY THROMBOSIS [None]
